FAERS Safety Report 13395642 (Version 1)
Quarter: 2017Q2

REPORT INFORMATION
  Report Type: Spontaneous
  Country: US (occurrence: US)
  Receive Date: 20170402
  Receipt Date: 20170402
  Transmission Date: 20170830
  Serious: No
  Sender: FDA-Public Use
  Company Number: None

PATIENT
  Age: 33 Year
  Sex: Male
  Weight: 121.5 kg

DRUGS (1)
  1. FLONASE SENSIMIST ALLERGY RELIEF [Suspect]
     Active Substance: FLUTICASONE FUROATE
     Indication: SEASONAL ALLERGY
     Dosage: OTHER STRENGTH:MCG;QUANTITY:60 SPRAY(S);OTHER ROUTE:SPRAYED INTO NOSTRILS?
     Dates: start: 20170326, end: 20170401

REACTIONS (3)
  - Haemoptysis [None]
  - Epistaxis [None]
  - Condition aggravated [None]

NARRATIVE: CASE EVENT DATE: 20170401
